FAERS Safety Report 20403874 (Version 2)
Quarter: 2022Q1

REPORT INFORMATION
  Report Type: Other
  Country: CN (occurrence: None)
  Receive Date: 20220131
  Receipt Date: 20220216
  Transmission Date: 20220423
  Serious: Yes (Other)
  Sender: FDA-Public Use
  Company Number: CN-ROCHE-3009627

PATIENT
  Age: 65 Year
  Sex: Male
  Weight: 49 kg

DRUGS (7)
  1. BEVACIZUMAB [Suspect]
     Active Substance: BEVACIZUMAB
     Indication: Lung adenocarcinoma stage IV
     Dosage: 4 CYCLES
     Route: 065
     Dates: start: 20180824, end: 20181103
  2. BEVACIZUMAB [Suspect]
     Active Substance: BEVACIZUMAB
     Dosage: MAINTENANCE THERAPY
     Route: 065
  3. PACLITAXEL [Suspect]
     Active Substance: PACLITAXEL
     Indication: Lung adenocarcinoma stage IV
     Dosage: 4 CYCLES
     Route: 065
     Dates: start: 20180824, end: 20181103
  4. CARBOPLATIN [Suspect]
     Active Substance: CARBOPLATIN
     Indication: Lung adenocarcinoma stage IV
     Dosage: 4 CYCLES
     Route: 065
     Dates: start: 20180824, end: 20181103
  5. PEMETREXED [Suspect]
     Active Substance: PEMETREXED
     Indication: Lung adenocarcinoma stage IV
     Dosage: 5 CYCLES
     Route: 065
     Dates: start: 20180406, end: 20180629
  6. PEMETREXED [Suspect]
     Active Substance: PEMETREXED
     Route: 065
     Dates: start: 20180721
  7. CISPLATIN [Suspect]
     Active Substance: CISPLATIN
     Indication: Lung adenocarcinoma stage IV
     Dosage: 5 CYCLES
     Route: 065
     Dates: start: 20180406, end: 20180629

REACTIONS (2)
  - Anaemia [Recovering/Resolving]
  - Asthenia [Unknown]
